FAERS Safety Report 4531429-9 (Version None)
Quarter: 2004Q4

REPORT INFORMATION
  Report Type: 
  Country: None (occurrence: None)
  Receive Date: 20041216
  Receipt Date: 20041206
  Transmission Date: 20050328
  Serious: Yes (Other)
  Sender: FDA-Public Use
  Company Number: US-JNJFOC-20041201353

PATIENT
  Age: 58 Year
  Sex: Male

DRUGS (2)
  1. TYLENOL [Suspect]
     Indication: TOOTHACHE
     Dosage: 4000 MG, 1 IN 1 DAY, ORAL
     Route: 048
     Dates: start: 20041205, end: 20041205
  2. ANBESOL [Concomitant]

REACTIONS (5)
  - ABNORMAL BEHAVIOUR [None]
  - ARTHROPATHY [None]
  - CEREBROVASCULAR ACCIDENT [None]
  - LOSS OF CONSCIOUSNESS [None]
  - SKIN DISCOLOURATION [None]
